FAERS Safety Report 14353849 (Version 2)
Quarter: 2018Q1

REPORT INFORMATION
  Report Type: Spontaneous
  Country: PL (occurrence: PL)
  Receive Date: 20180105
  Receipt Date: 20180109
  Transmission Date: 20180509
  Serious: Yes (Life-Threatening)
  Sender: FDA-Public Use
  Company Number: PL-009507513-1712POL013165

PATIENT
  Age: 1 Day
  Sex: Male

DRUGS (2)
  1. EUVAX B [Suspect]
     Active Substance: HEPATITIS B VIRUS VACCINE
     Indication: PROPHYLAXIS
     Dates: start: 20140627, end: 20140627
  2. BCG LIVE [Suspect]
     Active Substance: BACILLUS CALMETTE-GUERIN SUBSTRAIN TICE LIVE ANTIGEN
     Indication: TUBERCULOSIS BLADDER
     Dates: start: 20140627, end: 20140627

REACTIONS (2)
  - Poor sucking reflex [Recovering/Resolving]
  - Somnolence [Recovering/Resolving]

NARRATIVE: CASE EVENT DATE: 20140627
